FAERS Safety Report 22199845 (Version 1)
Quarter: 2023Q2

REPORT INFORMATION
  Report Type: Report from Study
  Country: IT (occurrence: IT)
  Receive Date: 20230412
  Receipt Date: 20230412
  Transmission Date: 20230721
  Serious: Yes (Hospitalization, Other)
  Sender: FDA-Public Use
  Company Number: None

PATIENT
  Age: 18 Year
  Sex: Female
  Weight: 85 kg

DRUGS (6)
  1. METHOTREXATE (METHOTREXATE SODIUM) [Suspect]
     Active Substance: METHOTREXATE SODIUM
     Indication: Acute lymphocytic leukaemia recurrent
     Dosage: 200 MG INFUSION OVER 30 MIN. + 1810 MG SLOW INFUSION OVER 35.5 H
     Route: 065
     Dates: start: 20221227, end: 20221229
  2. CYTARABINE [Suspect]
     Active Substance: CYTARABINE
     Indication: Acute lymphocytic leukaemia recurrent
     Dosage: 4000 MG X 2 SUMS/DAY
     Route: 065
     Dates: start: 20221231, end: 20221231
  3. ONCASPAR [Suspect]
     Active Substance: PEGASPARGASE
     Indication: Acute lymphocytic leukaemia recurrent
     Dosage: 2015 IU (INTERNATIONAL UNIT) DAILY; 2015 IU/DAY
     Route: 065
     Dates: start: 20230102, end: 20230102
  4. PURINETHOL [Suspect]
     Active Substance: MERCAPTOPURINE
     Indication: Acute lymphocytic leukaemia recurrent
     Dosage: 200 MILLIGRAM DAILY; 200 MG/DAY
     Route: 065
     Dates: start: 20221227, end: 20221231
  5. DIFLUCAN [Concomitant]
     Active Substance: FLUCONAZOLE
     Indication: Product used for unknown indication
     Dosage: 400 MILLIGRAM DAILY; 400 MG/DAY
     Route: 065
     Dates: start: 20230103, end: 20230120
  6. MORPHINE SULFATE [Concomitant]
     Active Substance: MORPHINE SULFATE
     Indication: Product used for unknown indication
     Dosage: 40 MG IN 48 ML PHYS./DAY
     Route: 065
     Dates: start: 20230103, end: 20230120

REACTIONS (1)
  - Drug-induced liver injury [Recovered/Resolved]

NARRATIVE: CASE EVENT DATE: 20230103
